FAERS Safety Report 6135609-0 (Version None)
Quarter: 2009Q1

REPORT INFORMATION
  Report Type: 
  Country: None (occurrence: None)
  Receive Date: 20090327
  Receipt Date: 20090317
  Transmission Date: 20090719
  Serious: Yes (Hospitalization)
  Sender: FDA-Public Use
  Company Number: JP-PFIZER INC-2009184961

PATIENT

DRUGS (10)
  1. RIFABUTIN [Suspect]
     Indication: MYCOBACTERIUM AVIUM COMPLEX INFECTION
     Dosage: UNK
     Route: 048
     Dates: start: 20090120, end: 20090313
  2. ETHAMBUTOL [Concomitant]
     Dates: start: 20090120, end: 20090313
  3. KLARICID [Concomitant]
     Dates: start: 20090120, end: 20090313
  4. MAG-LAX [Concomitant]
  5. CYANOCOBALAMIN [Concomitant]
     Dates: start: 20090126
  6. DOGMATYL [Concomitant]
  7. WYPAX [Concomitant]
  8. MELBIN [Concomitant]
  9. ACTOS [Concomitant]
  10. NITOROL R [Concomitant]

REACTIONS (2)
  - ANOREXIA [None]
  - HEPATIC FUNCTION ABNORMAL [None]
